FAERS Safety Report 8595011-9 (Version None)
Quarter: 2012Q3

REPORT INFORMATION
  Report Type: 
  Country: None (occurrence: None)
  Receive Date: 20120815
  Receipt Date: 20120803
  Transmission Date: 20120928
  Serious: Yes (Other)
  Sender: FDA-Public Use
  Company Number: US-MYLANLABS-2012S1014209

PATIENT
  Age: 41 Year
  Sex: Female
  Weight: 53.52 kg

DRUGS (4)
  1. VIVELLE [Concomitant]
  2. PROZAC [Concomitant]
  3. SEROQUEL [Concomitant]
  4. AMNESTEEM [Suspect]
     Indication: ACNE
     Route: 048
     Dates: start: 20120420, end: 20120709

REACTIONS (4)
  - DRY EYE [None]
  - RECTAL HAEMORRHAGE [None]
  - DRY SKIN [None]
  - CONSTIPATION [None]
